FAERS Safety Report 5136923-8 (Version None)
Quarter: 2006Q4

REPORT INFORMATION
  Report Type: 
  Country: None (occurrence: None)
  Receive Date: 20061023
  Receipt Date: 20061011
  Transmission Date: 20070319
  Serious: Yes (Hospitalization)
  Sender: FDA-Public Use
  Company Number: 2006125032

PATIENT
  Age: 51 Year
  Sex: Female
  Weight: 62 kg

DRUGS (3)
  1. PROVERA [Suspect]
     Indication: HORMONE REPLACEMENT THERAPY
     Dosage: 2.5 MG (2.5 MG), ORAL
     Route: 048
     Dates: start: 20040201
  2. PREMARIN [Suspect]
     Indication: HORMONE REPLACEMENT THERAPY
     Dosage: 0.625 MG (0.625 MG), ORAL
     Route: 048
     Dates: start: 20040201
  3. DUOLUTON (ETHINYLESTRADIOL, LEVONORGESTREL) [Suspect]
     Indication: HORMONE REPLACEMENT THERAPY
     Dates: start: 20010401

REACTIONS (4)
  - OESTROGEN RECEPTOR ASSAY POSITIVE [None]
  - OVARIAN CANCER [None]
  - PROGESTERONE RECEPTOR ASSAY POSITIVE [None]
  - VAGINAL DISCHARGE [None]
